FAERS Safety Report 6204220-5 (Version None)
Quarter: 2009Q2

REPORT INFORMATION
  Report Type: 
  Country: None (occurrence: None)
  Receive Date: 20090521
  Receipt Date: 20090514
  Transmission Date: 20091009
  Serious: Yes (Other)
  Sender: FDA-Public Use
  Company Number: 273864

PATIENT
  Age: 54 Year
  Sex: Male
  Weight: 76 kg

DRUGS (5)
  1. ETOMIDATE [Suspect]
     Indication: ANAESTHESIA
     Dosage: 20 MG,
  2. FENTANYL [Suspect]
     Indication: INDUCTION OF ANAESTHESIA
     Dosage: 300 MCG, 700 MCG
  3. FENTANYL [Suspect]
     Indication: MAINTENANCE OF ANAESTHESIA
     Dosage: 300 MCG, 700 MCG
  4. (CISATRACURIUM) [Suspect]
     Indication: INDUCTION OF ANAESTHESIA
     Dosage: 6 MG,
  5. SEVOFLURANE [Concomitant]

REACTIONS (5)
  - BRADYCARDIA [None]
  - BRUGADA SYNDROME [None]
  - BUNDLE BRANCH BLOCK RIGHT [None]
  - INTERVERTEBRAL DISC PROTRUSION [None]
  - RADICULAR SYNDROME [None]
